FAERS Safety Report 19036081 (Version 2)
Quarter: 2021Q3

REPORT INFORMATION
  Report Type: Spontaneous
  Country: US (occurrence: US)
  Receive Date: 20210321
  Receipt Date: 20210713
  Transmission Date: 20211014
  Serious: Yes (Hospitalization)
  Sender: FDA-Public Use
  Company Number: US-TEVA-2021-US-1890800

PATIENT
  Age: 50 Year
  Sex: Female

DRUGS (1)
  1. TRIMETHOPRIM?SULFAMETHOXAZOLE [Suspect]
     Active Substance: SULFAMETHOXAZOLE\TRIMETHOPRIM
     Indication: NASOPHARYNGITIS
     Dosage: TOOK TWO DOSES
     Route: 065

REACTIONS (3)
  - Rash [Recovered/Resolved]
  - Dermatitis bullous [Recovered/Resolved]
  - Fixed eruption [Recovered/Resolved]
